FAERS Safety Report 7554503-1 (Version None)
Quarter: 2011Q2

REPORT INFORMATION
  Report Type: 
  Country: None (occurrence: None)
  Receive Date: 20110617
  Receipt Date: 20110607
  Transmission Date: 20111010
  Serious: Yes (Hospitalization)
  Sender: FDA-Public Use
  Company Number: B0724565A

PATIENT
  Sex: Female

DRUGS (6)
  1. SERETIDE [Suspect]
     Indication: ASTHMA
     Route: 055
  2. BRICANYL [Suspect]
     Indication: ASTHMA
     Route: 055
  3. DESLORATADINE [Suspect]
     Indication: ASTHMA
     Route: 048
  4. SEREVENT [Suspect]
     Indication: ASTHMA
     Dosage: 25MCG TWICE PER DAY
     Route: 055
  5. XOLAIR [Suspect]
     Indication: ASTHMA
     Dosage: 300MG MONTHLY
     Route: 058
     Dates: start: 20110101, end: 20110401
  6. SINGULAIR [Suspect]
     Indication: ASTHMA
     Dosage: 5MG PER DAY
     Route: 048

REACTIONS (9)
  - MUSCULAR WEAKNESS [None]
  - PARAESTHESIA [None]
  - PALPITATIONS [None]
  - VERTIGO [None]
  - HEADACHE [None]
  - TACHYCARDIA [None]
  - SINUS TACHYCARDIA [None]
  - MALAISE [None]
  - FEELING HOT [None]
